FAERS Safety Report 5532781-8 (Version None)
Quarter: 2007Q4

REPORT INFORMATION
  Report Type: 
  Country: None (occurrence: None)
  Receive Date: 20071130
  Receipt Date: 20071130
  Transmission Date: 20080405
  Serious: Yes (Hospitalization)
  Sender: FDA-Public Use
  Company Number: None

PATIENT
  Age: 68 Year
  Sex: Female
  Weight: 123 kg

DRUGS (2)
  1. LITHIUM CARBONATE [Suspect]
     Indication: BIPOLAR DISORDER
     Dosage: 900MG  ER  ONCE  PO
     Route: 048
     Dates: start: 20070922, end: 20070922
  2. ALTACE [Concomitant]

REACTIONS (3)
  - LETHARGY [None]
  - PNEUMONIA ASPIRATION [None]
  - THERAPEUTIC AGENT TOXICITY [None]
